FAERS Safety Report 8351573-8 (Version None)
Quarter: 2012Q2

REPORT INFORMATION
  Report Type: 
  Country: None (occurrence: None)
  Receive Date: 20120511
  Receipt Date: 20120502
  Transmission Date: 20120825
  Serious: Yes (Hospitalization)
  Sender: FDA-Public Use
  Company Number: US-BIOGENIDEC-2010BI021312

PATIENT
  Age: 63 Year
  Sex: Male

DRUGS (3)
  1. AVONEX [Suspect]
     Indication: MULTIPLE SCLEROSIS
     Route: 030
     Dates: start: 19960626
  2. AVONEX [Suspect]
     Route: 030
     Dates: start: 20050401, end: 20051001
  3. AVONEX [Suspect]
     Route: 030
     Dates: start: 20051101, end: 20100831

REACTIONS (2)
  - SURGERY [None]
  - BACK PAIN [None]
